FAERS Safety Report 10207853 (Version 1)
Quarter: 2014Q2

REPORT INFORMATION
  Report Type: Spontaneous
  Country: US (occurrence: US)
  Receive Date: 20140530
  Receipt Date: 20140530
  Transmission Date: 20141212
  Serious: No
  Sender: FDA-Public Use
  Company Number: US-GLAXOSMITHKLINE-A1063101A

PATIENT
  Age: 74 Year
  Sex: Male

DRUGS (3)
  1. VENTOLIN [Suspect]
     Indication: DYSPNOEA
     Route: 055
     Dates: start: 201402
  2. ALBUTEROL [Concomitant]
     Indication: DYSPNOEA
     Route: 055
  3. PRO-AIR [Concomitant]
     Indication: DYSPNOEA

REACTIONS (3)
  - Drug ineffective [Not Recovered/Not Resolved]
  - Overdose [Unknown]
  - Product quality issue [Unknown]
